FAERS Safety Report 19775073 (Version 2)
Quarter: 2021Q3

REPORT INFORMATION
  Report Type: Report from Study
  Country: JP (occurrence: JP)
  Receive Date: 20210901
  Receipt Date: 20210903
  Transmission Date: 20211014
  Serious: Yes (Death, Other)
  Sender: FDA-Public Use
  Company Number: JP-SEAGEN-2021SGN04519

PATIENT
  Age: 59 Year
  Sex: Male
  Weight: 48.7 kg

DRUGS (3)
  1. DECADRON [Concomitant]
     Active Substance: DEXAMETHASONE
     Indication: PERIPHERAL T-CELL LYMPHOMA UNSPECIFIED STAGE IV
     Dosage: UNK
     Route: 065
     Dates: start: 20210105, end: 20210514
  2. BRENTUXIMAB VEDOTIN [Suspect]
     Active Substance: BRENTUXIMAB VEDOTIN
     Indication: PERIPHERAL T-CELL LYMPHOMA UNSPECIFIED STAGE IV
     Dosage: 1.8 MILLIGRAM/KILOGRAM
     Route: 050
     Dates: start: 20200625
  3. PREDNISOLONE. [Concomitant]
     Active Substance: PREDNISOLONE
     Indication: PERIPHERAL T-CELL LYMPHOMA UNSPECIFIED STAGE IV
     Dosage: UNK
     Route: 065
     Dates: start: 20200626, end: 20200630

REACTIONS (1)
  - Death [Fatal]

NARRATIVE: CASE EVENT DATE: 20210625
